FAERS Safety Report 12505303 (Version 1)
Quarter: 2016Q2

REPORT INFORMATION
  Report Type: Spontaneous
  Country: US (occurrence: US)
  Receive Date: 20160628
  Receipt Date: 20160628
  Transmission Date: 20160815
  Serious: Yes (Death)
  Sender: FDA-Public Use
  Company Number: US-INSYS THERAPEUTICS, INC-INS201505-000190

PATIENT
  Age: 56 Year
  Sex: Female
  Weight: 90.26 kg

DRUGS (12)
  1. PROMETHAZINE [Concomitant]
     Active Substance: PROMETHAZINE\PROMETHAZINE HYDROCHLORIDE
  2. HYDROMORPHONE [Concomitant]
     Active Substance: HYDROMORPHONE
  3. SUBSYS [Suspect]
     Active Substance: FENTANYL
     Indication: INTERVERTEBRAL DISC DEGENERATION
  4. DIPHENHYDRAMINE. [Concomitant]
     Active Substance: DIPHENHYDRAMINE
  5. METOPROLOL. [Concomitant]
     Active Substance: METOPROLOL
  6. NICOTINE. [Concomitant]
     Active Substance: NICOTINE
  7. CAFFEINE. [Concomitant]
     Active Substance: CAFFEINE
  8. LIDOCAINE. [Concomitant]
     Active Substance: LIDOCAINE
  9. HYDROXYZINE [Concomitant]
     Active Substance: HYDROXYZINE\HYDROXYZINE HYDROCHLORIDE
  10. EXALGO [Suspect]
     Active Substance: HYDROMORPHONE HYDROCHLORIDE
     Indication: INTERVERTEBRAL DISC DEGENERATION
  11. OXYCODONE [Concomitant]
     Active Substance: OXYCODONE
  12. ALPRAZOLAM. [Concomitant]
     Active Substance: ALPRAZOLAM

REACTIONS (4)
  - Respiratory disorder [Unknown]
  - Off label use [Unknown]
  - Toxicity to various agents [Fatal]
  - Sedation [Unknown]
